FAERS Safety Report 4658582-0 (Version None)
Quarter: 2005Q2

REPORT INFORMATION
  Report Type: 
  Country: None (occurrence: None)
  Receive Date: 20050509
  Receipt Date: 20050503
  Transmission Date: 20051028
  Serious: Yes (Hospitalization)
  Sender: FDA-Public Use
  Company Number: 2005VX000346

PATIENT
  Sex: Male

DRUGS (2)
  1. EFUDEX [Suspect]
  2. ZOCOR [Concomitant]

REACTIONS (1)
  - HEPATIC FAILURE [None]
